FAERS Safety Report 11102452 (Version 1)
Quarter: 2015Q2

REPORT INFORMATION
  Report Type: Spontaneous
  Country: US (occurrence: None)
  Receive Date: 20150508
  Receipt Date: 20150508
  Transmission Date: 20150821
  Serious: No
  Sender: FDA-Public Use
  Company Number: None

PATIENT
  Age: 54 Year
  Sex: Female
  Weight: 58.4 kg

DRUGS (9)
  1. OXALIPLATIN. [Concomitant]
     Active Substance: OXALIPLATIN
  2. FLUOROURACIL. [Concomitant]
     Active Substance: FLUOROURACIL
  3. OXALIPLATIN. [Suspect]
     Active Substance: OXALIPLATIN
     Route: 042
  4. PALONOSETRON [Concomitant]
     Active Substance: PALONOSETRON
  5. DEXAMETHASONE. [Concomitant]
     Active Substance: DEXAMETHASONE
  6. OXALIPLATIN. [Suspect]
     Active Substance: OXALIPLATIN
     Indication: COLON CANCER
     Route: 042
  7. FOSAPREPITANT [Concomitant]
     Active Substance: FOSAPREPITANT
  8. BEVACIZUMAB [Concomitant]
     Active Substance: BEVACIZUMAB
  9. LEUCOVORIN [Concomitant]
     Active Substance: LEUCOVORIN

REACTIONS (3)
  - Feeling cold [None]
  - Paraesthesia [None]
  - Hypoaesthesia [None]

NARRATIVE: CASE EVENT DATE: 20150506
